FAERS Safety Report 19184496 (Version 1)
Quarter: 2021Q2

REPORT INFORMATION
  Report Type: Spontaneous
  Country: US (occurrence: US)
  Receive Date: 20210426
  Receipt Date: 20210426
  Transmission Date: 20210717
  Serious: No
  Sender: FDA-Public Use
  Company Number: None

PATIENT
  Age: 43 Year
  Sex: Female

DRUGS (1)
  1. BENLYSTA [Suspect]
     Active Substance: BELIMUMAB
     Indication: CUTANEOUS LUPUS ERYTHEMATOSUS
     Dosage: ?          OTHER DOSE:1 PEN;?
     Route: 058

REACTIONS (3)
  - Rash [None]
  - Arthralgia [None]
  - Cerebrovascular accident [None]

NARRATIVE: CASE EVENT DATE: 20210423
